FAERS Safety Report 10228560 (Version 1)
Quarter: 2014Q2

REPORT INFORMATION
  Report Type: Spontaneous
  Country: AU (occurrence: AU)
  Receive Date: 20140610
  Receipt Date: 20140610
  Transmission Date: 20141212
  Serious: Yes (Death)
  Sender: FDA-Public Use
  Company Number: AU-JNJFOC-20140604114

PATIENT
  Sex: Female

DRUGS (1)
  1. IBRUTINIB [Suspect]
     Indication: MANTLE CELL LYMPHOMA
     Dosage: TWO WEEKS SUPPLY OBTAINED. DOSE REDUCED TO ONE TABLET/DAY BECAUSE OF DELAY IN THE DRUG SHIPMENT.
     Route: 048

REACTIONS (3)
  - Intestinal perforation [Unknown]
  - Pain [Unknown]
  - Death [Fatal]
